FAERS Safety Report 5721159-X (Version None)
Quarter: 2008Q2

REPORT INFORMATION
  Report Type: 
  Country: None (occurrence: None)
  Receive Date: 20080429
  Receipt Date: 20080425
  Transmission Date: 20081010
  Serious: Yes (Other)
  Sender: FDA-Public Use
  Company Number: B0505190A

PATIENT
  Age: 41 Year
  Sex: Female
  Weight: 66.3 kg

DRUGS (2)
  1. KIVEXA [Suspect]
     Route: 048
     Dates: start: 20071115, end: 20080116
  2. NEVIRAPINE [Concomitant]
     Dosage: 400MG PER DAY
     Route: 048
     Dates: start: 20000901

REACTIONS (4)
  - ALCOHOL INTOLERANCE [None]
  - ANOREXIA [None]
  - NAUSEA [None]
  - VOMITING [None]
